FAERS Safety Report 8436895-4 (Version None)
Quarter: 2012Q2

REPORT INFORMATION
  Report Type: 
  Country: None (occurrence: None)
  Receive Date: 20120614
  Receipt Date: 20120522
  Transmission Date: 20120825
  Serious: Yes (Hospitalization, Other)
  Sender: FDA-Public Use
  Company Number: TR-PFIZER INC-2012124583

PATIENT
  Age: 55 Year
  Sex: Female

DRUGS (2)
  1. CRIZOTINIB [Suspect]
     Dosage: 250 MG, 2X/DAY
  2. CRIZOTINIB [Suspect]
     Dosage: 250 MG, 1X/DAY

REACTIONS (5)
  - CEREBRAL THROMBOSIS [None]
  - HEADACHE [None]
  - HEMIANOPIA [None]
  - MYOCARDIAL INFARCTION [None]
  - CEREBROVASCULAR ACCIDENT [None]
